FAERS Safety Report 13904944 (Version 1)
Quarter: 2017Q3

REPORT INFORMATION
  Report Type: Spontaneous
  Country: US (occurrence: US)
  Receive Date: 20170824
  Receipt Date: 20170824
  Transmission Date: 20171127
  Serious: Yes (Hospitalization)
  Sender: FDA-Public Use
  Company Number: None

PATIENT
  Age: 62 Year
  Sex: Female
  Weight: 111.6 kg

DRUGS (6)
  1. SIMVASTATIN. [Concomitant]
     Active Substance: SIMVASTATIN
  2. TYLENOL [Concomitant]
     Active Substance: ACETAMINOPHEN
  3. VICTOZA [Suspect]
     Active Substance: LIRAGLUTIDE
  4. MOBIC [Concomitant]
     Active Substance: MELOXICAM
  5. METFORMIN [Concomitant]
     Active Substance: METFORMIN HYDROCHLORIDE
  6. BENAZIPRIL [Concomitant]

REACTIONS (12)
  - Urticaria [None]
  - Dizziness [None]
  - Blood magnesium decreased [None]
  - Loss of consciousness [None]
  - Vomiting [None]
  - Rash [None]
  - Cardiac disorder [None]
  - Blood potassium decreased [None]
  - Diarrhoea [None]
  - Dehydration [None]
  - Eructation [None]
  - Acute kidney injury [None]

NARRATIVE: CASE EVENT DATE: 20170823
